FAERS Safety Report 8988213 (Version 1)
Quarter: 2012Q4

REPORT INFORMATION
  Report Type: 
  Country: JP (occurrence: JP)
  Receive Date: 20121227
  Receipt Date: 20121227
  Transmission Date: 20130627
  Serious: Yes (Other)
  Sender: FDA-Public Use
  Company Number: JP-ROCHE-1173834

PATIENT
  Age: 78 Year
  Sex: Female

DRUGS (5)
  1. RITUXIMAB [Suspect]
     Indication: B-CELL LYMPHOMA
     Route: 065
  2. CYCLOPHOSPHAMIDE [Concomitant]
     Indication: B-CELL LYMPHOMA
     Route: 065
  3. DOXORUBICIN [Concomitant]
     Indication: B-CELL LYMPHOMA
     Route: 065
  4. VINCRISTINE [Concomitant]
     Indication: B-CELL LYMPHOMA
     Route: 065
  5. PREDNISOLONE [Concomitant]
     Indication: B-CELL LYMPHOMA
     Route: 065

REACTIONS (1)
  - Coma [Unknown]
